FAERS Safety Report 5518664-8 (Version None)
Quarter: 2007Q4

REPORT INFORMATION
  Report Type: 
  Country: None (occurrence: None)
  Receive Date: 20071115
  Receipt Date: 20071107
  Transmission Date: 20080405
  Serious: Yes (Other)
  Sender: FDA-Public Use
  Company Number: US-ASTRAZENECA-2007UW25287

PATIENT
  Sex: Female

DRUGS (2)
  1. SEROQUEL [Suspect]
     Indication: BIPOLAR DISORDER
     Route: 048
     Dates: start: 20030816
  2. RISPERDAL [Concomitant]
     Dates: start: 19990501

REACTIONS (5)
  - ABDOMINAL PAIN [None]
  - CATHETERISATION CARDIAC [None]
  - DIABETIC KETOACIDOSIS [None]
  - STENT PLACEMENT [None]
  - TYPE 1 DIABETES MELLITUS [None]
